FAERS Safety Report 19497056 (Version 1)
Quarter: 2021Q3

REPORT INFORMATION
  Report Type: Spontaneous
  Country: US (occurrence: US)
  Receive Date: 20210705
  Receipt Date: 20210705
  Transmission Date: 20211014
  Serious: Yes (Other)
  Sender: FDA-Public Use
  Company Number: None

PATIENT
  Age: 12 Year
  Sex: Male
  Weight: 86.85 kg

DRUGS (1)
  1. DEXTROAMPHET SACCHARAT, AMPHET ASPARTATE, DEXTROAMPHET SULFATE AND AMPHET SULFAT [Suspect]
     Active Substance: AMPHETAMINE ASPARTATE\AMPHETAMINE SULFATE\DEXTROAMPHETAMINE SACCHARATE\DEXTROAMPHETAMINE SULFATE
     Indication: ATTENTION DEFICIT HYPERACTIVITY DISORDER
     Route: 048
     Dates: start: 20210628, end: 20210702

REACTIONS (16)
  - Insurance issue [None]
  - Agitation [None]
  - Anger [None]
  - Fatigue [None]
  - Mental status changes [None]
  - Product substitution issue [None]
  - Irritability [None]
  - Social avoidant behaviour [None]
  - Suicidal ideation [None]
  - Condition aggravated [None]
  - Nausea [None]
  - Frustration tolerance decreased [None]
  - Malaise [None]
  - Drug ineffective [None]
  - Headache [None]
  - Abdominal discomfort [None]

NARRATIVE: CASE EVENT DATE: 20210701
